FAERS Safety Report 14918207 (Version 3)
Quarter: 2018Q3

REPORT INFORMATION
  Report Type: Report from Study
  Country: JP (occurrence: JP)
  Receive Date: 20180521
  Receipt Date: 20180730
  Transmission Date: 20181010
  Serious: Yes (Hospitalization, Other)
  Sender: FDA-Public Use
  Company Number: JP-INCYTE CORPORATION-2018IN004885

PATIENT

DRUGS (32)
  1. RED BLOOD CELLS, CONCENTRATED [Concomitant]
     Active Substance: HUMAN RED BLOOD CELL
     Dosage: 2 IU, UNK
     Route: 065
     Dates: start: 20170622, end: 20170622
  2. RED BLOOD CELLS, CONCENTRATED [Concomitant]
     Active Substance: HUMAN RED BLOOD CELL
     Dosage: 2 IU, UNK
     Route: 065
     Dates: start: 20150205, end: 20150205
  3. RED BLOOD CELLS, CONCENTRATED [Concomitant]
     Active Substance: HUMAN RED BLOOD CELL
     Dosage: 2 IU, UNK
     Route: 065
     Dates: start: 20150723, end: 20150723
  4. RED BLOOD CELLS, CONCENTRATED [Concomitant]
     Active Substance: HUMAN RED BLOOD CELL
     Dosage: 2 IU, UNK
     Route: 065
     Dates: start: 20150917, end: 20150917
  5. RED BLOOD CELLS, CONCENTRATED [Concomitant]
     Active Substance: HUMAN RED BLOOD CELL
     Dosage: 2 IU, UNK
     Route: 065
     Dates: start: 20160915, end: 20160915
  6. RED BLOOD CELLS, CONCENTRATED [Concomitant]
     Active Substance: HUMAN RED BLOOD CELL
     Dosage: 2 IU, UNK
     Route: 065
     Dates: start: 20170406, end: 20170406
  7. RED BLOOD CELLS, CONCENTRATED [Concomitant]
     Active Substance: HUMAN RED BLOOD CELL
     Dosage: 2 IU, UNK
     Route: 065
     Dates: start: 20150430, end: 20150430
  8. RED BLOOD CELLS, CONCENTRATED [Concomitant]
     Active Substance: HUMAN RED BLOOD CELL
     Dosage: 2 IU, UNK
     Route: 065
     Dates: start: 20150625, end: 20150625
  9. RED BLOOD CELLS, CONCENTRATED [Concomitant]
     Active Substance: HUMAN RED BLOOD CELL
     Dosage: 2 IU, UNK
     Route: 065
     Dates: start: 20150820, end: 20150820
  10. RED BLOOD CELLS, CONCENTRATED [Concomitant]
     Active Substance: HUMAN RED BLOOD CELL
     Dosage: 2 IU, UNK
     Route: 065
     Dates: start: 20151105, end: 20151105
  11. RED BLOOD CELLS, CONCENTRATED [Concomitant]
     Active Substance: HUMAN RED BLOOD CELL
     Dosage: 2 IU, UNK
     Route: 065
     Dates: start: 20180105, end: 20180105
  12. JAKAVI [Suspect]
     Active Substance: RUXOLITINIB
     Dosage: 5 MG, BID
     Route: 048
     Dates: start: 20151002
  13. RED BLOOD CELLS, CONCENTRATED [Concomitant]
     Active Substance: HUMAN RED BLOOD CELL
     Indication: PRIMARY MYELOFIBROSIS
     Dosage: 2 IU, UNK
     Route: 065
     Dates: start: 20150122, end: 20150122
  14. RED BLOOD CELLS, CONCENTRATED [Concomitant]
     Active Substance: HUMAN RED BLOOD CELL
     Dosage: 2 IU, UNK
     Route: 065
     Dates: start: 20160114, end: 20160114
  15. RED BLOOD CELLS, CONCENTRATED [Concomitant]
     Active Substance: HUMAN RED BLOOD CELL
     Dosage: 2 IU, UNK
     Route: 065
     Dates: start: 20170914, end: 20170914
  16. RED BLOOD CELLS, CONCENTRATED [Concomitant]
     Active Substance: HUMAN RED BLOOD CELL
     Dosage: 2 IU, UNK
     Route: 065
     Dates: start: 20171214, end: 20171214
  17. LEVOFLOXACIN HEMIHYDRATE [Concomitant]
     Active Substance: LEVOFLOXACIN
     Indication: OPPORTUNISTIC INFECTION PROPHYLAXIS
     Dosage: 500 MG, UNK
     Route: 048
     Dates: start: 20160210, end: 20160223
  18. RED BLOOD CELLS, CONCENTRATED [Concomitant]
     Active Substance: HUMAN RED BLOOD CELL
     Dosage: 2 IU, UNK
     Route: 065
     Dates: start: 20150402, end: 20150402
  19. RED BLOOD CELLS, CONCENTRATED [Concomitant]
     Active Substance: HUMAN RED BLOOD CELL
     Dosage: 2 IU, UNK
     Route: 065
     Dates: start: 20150926, end: 20150926
  20. RED BLOOD CELLS, CONCENTRATED [Concomitant]
     Active Substance: HUMAN RED BLOOD CELL
     Dosage: 2 IU, UNK
     Route: 065
     Dates: start: 20160428, end: 20160428
  21. RED BLOOD CELLS, CONCENTRATED [Concomitant]
     Active Substance: HUMAN RED BLOOD CELL
     Dosage: 2 IU, UNK
     Route: 065
     Dates: start: 20180125, end: 20180125
  22. RED BLOOD CELLS, CONCENTRATED [Concomitant]
     Active Substance: HUMAN RED BLOOD CELL
     Dosage: 2 IU, UNK
     Route: 065
     Dates: start: 20151119, end: 20151119
  23. RED BLOOD CELLS, CONCENTRATED [Concomitant]
     Active Substance: HUMAN RED BLOOD CELL
     Dosage: 2 IU, UNK
     Route: 065
     Dates: start: 20160630, end: 20160630
  24. RED BLOOD CELLS, CONCENTRATED [Concomitant]
     Active Substance: HUMAN RED BLOOD CELL
     Dosage: 2 IU, UNK
     Route: 065
     Dates: start: 20161215, end: 20161215
  25. RED BLOOD CELLS, CONCENTRATED [Concomitant]
     Active Substance: HUMAN RED BLOOD CELL
     Dosage: 2 IU, UNK
     Route: 065
     Dates: start: 20170316, end: 20170316
  26. JAKAVI [Suspect]
     Active Substance: RUXOLITINIB
     Indication: PRIMARY MYELOFIBROSIS
     Dosage: 5 MG, BID
     Route: 048
     Dates: start: 20150109, end: 20150907
  27. RED BLOOD CELLS, CONCENTRATED [Concomitant]
     Active Substance: HUMAN RED BLOOD CELL
     Dosage: 2 IU, UNK
     Route: 065
     Dates: start: 20150304, end: 20150304
  28. RED BLOOD CELLS, CONCENTRATED [Concomitant]
     Active Substance: HUMAN RED BLOOD CELL
     Dosage: 2 IU, UNK
     Route: 065
     Dates: start: 20150528, end: 20150528
  29. RED BLOOD CELLS, CONCENTRATED [Concomitant]
     Active Substance: HUMAN RED BLOOD CELL
     Dosage: 2 IU, UNK
     Route: 065
     Dates: start: 20170202, end: 20170202
  30. RED BLOOD CELLS, CONCENTRATED [Concomitant]
     Active Substance: HUMAN RED BLOOD CELL
     Dosage: 2 IU, UNK
     Route: 065
     Dates: start: 20151217, end: 20151217
  31. RED BLOOD CELLS, CONCENTRATED [Concomitant]
     Active Substance: HUMAN RED BLOOD CELL
     Dosage: 2 IU, UNK
     Route: 065
     Dates: start: 20170824, end: 20170824
  32. RED BLOOD CELLS, CONCENTRATED [Concomitant]
     Active Substance: HUMAN RED BLOOD CELL
     Dosage: 2 IU, UNK
     Route: 065
     Dates: start: 20171026, end: 20171026

REACTIONS (8)
  - Blood pressure increased [Recovering/Resolving]
  - Oesophageal candidiasis [Recovered/Resolved]
  - Herpes zoster [Recovered/Resolved]
  - Primary myelofibrosis [Unknown]
  - White blood cell count decreased [Unknown]
  - Haemoglobin decreased [Unknown]
  - Urethritis [Recovering/Resolving]
  - Urinary tract infection [Recovered/Resolved]

NARRATIVE: CASE EVENT DATE: 20160418
